FAERS Safety Report 23543523 (Version 1)
Quarter: 2024Q1

REPORT INFORMATION
  Report Type: Spontaneous
  Country: GB (occurrence: None)
  Receive Date: 20240220
  Receipt Date: 20240220
  Transmission Date: 20240410
  Serious: Yes (Other)
  Sender: FDA-Public Use
  Company Number: GB-ROCHE-3504884

PATIENT
  Age: 62 Year
  Sex: Male
  Weight: 122 kg

DRUGS (4)
  1. TOCILIZUMAB [Suspect]
     Active Substance: TOCILIZUMAB
     Indication: Rheumatoid arthritis
     Route: 058
     Dates: start: 2022
  2. TOCILIZUMAB [Suspect]
     Active Substance: TOCILIZUMAB
     Dosage: ON 01/NOV/2023 AND 08/NOV/2023, HE RECEIVED MOST RECENT INFUSION PRIOR TO AE.
     Route: 058
     Dates: start: 20221002
  3. METHOTREXATE [Concomitant]
     Active Substance: METHOTREXATE
     Route: 058
     Dates: start: 20231125
  4. METHOTREXATE [Concomitant]
     Active Substance: METHOTREXATE
     Route: 058
     Dates: start: 20231114

REACTIONS (1)
  - Infected bite [Recovered/Resolved]

NARRATIVE: CASE EVENT DATE: 20231113
